FAERS Safety Report 18331877 (Version 1)
Quarter: 2020Q3

REPORT INFORMATION
  Report Type: Spontaneous
  Country: DE (occurrence: DE)
  Receive Date: 20200930
  Receipt Date: 20200930
  Transmission Date: 20201103
  Serious: Yes (Death, Hospitalization, Other)
  Sender: FDA-Public Use
  Company Number: DE-JNJFOC-20200937503

PATIENT
  Age: 68 Year
  Sex: Male
  Weight: 100 kg

DRUGS (7)
  1. RISPERDAL [Suspect]
     Active Substance: RISPERIDONE
     Indication: RESTLESSNESS
     Dosage: UNK MG, UNK (1/2?0?1/2 MG)
     Route: 048
     Dates: start: 20171114, end: 20171115
  2. METOPROLOL SUCCINATE. [Concomitant]
     Active Substance: METOPROLOL SUCCINATE
     Indication: HYPERTENSION
     Dosage: 47.5 MG, UNK
     Route: 048
     Dates: start: 20170101, end: 20171115
  3. HYDROCHLOROTHIAZID [Concomitant]
     Active Substance: HYDROCHLOROTHIAZIDE
     Indication: HYPERTENSION
     Dosage: 12.5 MG, UNK
     Route: 048
     Dates: start: 20170101, end: 20171115
  4. HALOPERIDOL. [Suspect]
     Active Substance: HALOPERIDOL
     Indication: RESTLESSNESS
     Dosage: UNK MG, UNK (1/2?0?2 MG)
     Route: 048
     Dates: start: 20170101, end: 20171115
  5. HALOPERIDOL. [Suspect]
     Active Substance: HALOPERIDOL
     Indication: ANXIETY
  6. RAMIPRIL. [Concomitant]
     Active Substance: RAMIPRIL
     Indication: HYPERTENSION
     Dosage: 10 MG, UNK
     Route: 048
     Dates: start: 20170101, end: 20171115
  7. RISPERDAL [Suspect]
     Active Substance: RISPERIDONE
     Indication: ANXIETY

REACTIONS (7)
  - Brain injury [Fatal]
  - Muscle twitching [Unknown]
  - Cardiac arrest [Fatal]
  - Infection susceptibility increased [Recovering/Resolving]
  - Spinal fracture [Unknown]
  - Bundle branch block right [Unknown]
  - Electrocardiogram QT interval [Unknown]

NARRATIVE: CASE EVENT DATE: 201711
